FAERS Safety Report 4669523-4 (Version None)
Quarter: 2005Q2

REPORT INFORMATION
  Report Type: 
  Country: None (occurrence: None)
  Receive Date: 20050523
  Receipt Date: 20050516
  Transmission Date: 20051028
  Serious: Yes (Life-Threatening, Hospitalization)
  Sender: FDA-Public Use
  Company Number: PHEH2005US05499

PATIENT
  Sex: Male

DRUGS (2)
  1. LOPRESSOR [Suspect]
     Dosage: UNK
  2. DIGOXIN [Suspect]
     Dosage: 2.5 MG, UNK
     Route: 048

REACTIONS (9)
  - CARDIAC PACEMAKER INSERTION [None]
  - HAEMODIALYSIS [None]
  - HEART RATE DECREASED [None]
  - MYOCARDIAL INFARCTION [None]
  - RENAL FAILURE [None]
  - RESUSCITATION [None]
  - SUICIDE ATTEMPT [None]
  - THERAPEUTIC AGENT TOXICITY [None]
  - VENTRICULAR FIBRILLATION [None]
